FAERS Safety Report 9618875 (Version 2)
Quarter: 2013Q4

REPORT INFORMATION
  Report Type: Spontaneous
  Country: JP (occurrence: JP)
  Receive Date: 20131014
  Receipt Date: 20131023
  Transmission Date: 20140711
  Serious: Yes (Death)
  Sender: FDA-Public Use
  Company Number: JP-ASTELLAS-2013JP010838

PATIENT
  Age: 25 Year
  Sex: Male

DRUGS (5)
  1. PROGRAF [Suspect]
     Indication: PROPHYLAXIS AGAINST GRAFT VERSUS HOST DISEASE
     Dosage: UNK
     Route: 065
  2. METHYLPREDNISOLONE [Concomitant]
     Indication: PROPHYLAXIS AGAINST GRAFT VERSUS HOST DISEASE
     Route: 065
  3. FLUDARA [Concomitant]
     Indication: PREMEDICATION
     Route: 065
  4. ALKERAN                            /00006401/ [Concomitant]
     Indication: PREMEDICATION
     Route: 065
  5. ATG                                /00575401/ [Concomitant]
     Indication: PREMEDICATION
     Route: 065

REACTIONS (1)
  - Thrombotic microangiopathy [Fatal]
